FAERS Safety Report 21784752 (Version 1)
Quarter: 2022Q4

REPORT INFORMATION
  Report Type: Spontaneous
  Country: CO (occurrence: CO)
  Receive Date: 20221227
  Receipt Date: 20221227
  Transmission Date: 20230113
  Serious: Yes (Death, Hospitalization, Other)
  Sender: FDA-Public Use
  Company Number: DE-BAYER-2022A020827

PATIENT
  Age: 63 Year
  Sex: Male

DRUGS (7)
  1. ANTI-THYMOCYTE GLOBULIN (RABBIT) NOS [Suspect]
     Active Substance: LAPINE T-LYMPHOCYTE IMMUNE GLOBULIN
     Indication: Immunosuppressant drug therapy
     Dosage: 100 MG
  2. METHYLPREDNISOLONE [Suspect]
     Active Substance: METHYLPREDNISOLONE
     Indication: Immunosuppressant drug therapy
     Dosage: 500 MG
  3. PREDNISONE [Suspect]
     Active Substance: PREDNISONE
     Indication: Immunosuppressant drug therapy
     Dosage: 10 MG, QD
  4. TACROLIMUS [Suspect]
     Active Substance: TACROLIMUS
     Indication: Immunosuppressant drug therapy
     Dosage: 3 MG, QD
  5. MYCOPHENOLATE SODIUM [Suspect]
     Active Substance: MYCOPHENOLATE SODIUM
     Indication: Immunosuppressant drug therapy
     Dosage: 1440 MG, QD
  6. SULFAMETHOXAZOLE\TRIMETHOPRIM [Concomitant]
     Active Substance: SULFAMETHOXAZOLE\TRIMETHOPRIM
     Indication: Prophylaxis
     Dosage: 960 MG, TIW
  7. VALGANCICLOVIR [Concomitant]
     Active Substance: VALGANCICLOVIR
     Indication: Prophylaxis
     Dosage: UNK

REACTIONS (33)
  - Haemolytic uraemic syndrome [Fatal]
  - Gastroenteritis Escherichia coli [Fatal]
  - Thrombotic microangiopathy [Fatal]
  - Oliguria [Fatal]
  - Oedema [Fatal]
  - Azotaemia [Fatal]
  - Thrombosis [Fatal]
  - Necrosis [Fatal]
  - Extravasation [Fatal]
  - Haemorrhage [Fatal]
  - Cerebral infarction [Fatal]
  - Multiple organ dysfunction syndrome [Fatal]
  - Renal failure [Fatal]
  - Respiratory failure [Fatal]
  - Acute myocardial infarction [Fatal]
  - Asthenia [Fatal]
  - Decreased appetite [Fatal]
  - Leukocytosis [Fatal]
  - Neutrophilia [Fatal]
  - Anaemia [Fatal]
  - Thrombocytopenia [Fatal]
  - Schistocytosis [Fatal]
  - Coma [Fatal]
  - Neurological decompensation [Fatal]
  - Gastrointestinal hypermotility [Fatal]
  - Sensory disturbance [Fatal]
  - Somnolence [Fatal]
  - Disorientation [Fatal]
  - Sepsis [Fatal]
  - Diarrhoea [Fatal]
  - Abdominal pain [Fatal]
  - Dehydration [Fatal]
  - Tachycardia [Fatal]

NARRATIVE: CASE EVENT DATE: 20180301
